FAERS Safety Report 17857292 (Version 5)
Quarter: 2021Q3

REPORT INFORMATION
  Report Type: Report from Study
  Country: None (occurrence: US)
  Receive Date: 20200603
  Receipt Date: 20210806
  Transmission Date: 20211014
  Serious: No
  Sender: FDA-Public Use
  Company Number: US-ABBVIE-20K-163-3419781-00

PATIENT
  Age: 28 Year
  Sex: Female
  Weight: 65.38 kg

DRUGS (3)
  1. ORILISSA [Suspect]
     Active Substance: ELAGOLIX SODIUM
     Indication: ENDOMETRIOSIS
     Route: 048
     Dates: start: 2020, end: 2020
  2. HUMIRA [Suspect]
     Active Substance: ADALIMUMAB
     Indication: PRODUCT USED FOR UNKNOWN INDICATION
     Route: 058
     Dates: end: 2020
  3. ORILISSA [Suspect]
     Active Substance: ELAGOLIX SODIUM
     Route: 048
     Dates: start: 202005, end: 2021

REACTIONS (14)
  - Blood calcium increased [Recovered/Resolved]
  - Vitamin D decreased [Recovered/Resolved]
  - Nausea [Recovered/Resolved]
  - Hepatic mass [Recovering/Resolving]
  - Irritable bowel syndrome [Recovered/Resolved]
  - Aspartate aminotransferase decreased [Recovered/Resolved]
  - Endometriosis [Recovered/Resolved]
  - Biliary colic [Recovered/Resolved]
  - SARS-CoV-2 test negative [Recovered/Resolved]
  - Vomiting [Recovered/Resolved]
  - Anxiety [Recovering/Resolving]
  - Gastrointestinal disorder [Not Recovered/Not Resolved]
  - Depression [Recovering/Resolving]
  - Blood calcium increased [Recovered/Resolved]

NARRATIVE: CASE EVENT DATE: 202005
